FAERS Safety Report 8285361-8 (Version None)
Quarter: 2012Q2

REPORT INFORMATION
  Report Type: 
  Country: None (occurrence: None)
  Receive Date: 20120413
  Receipt Date: 20120411
  Transmission Date: 20120825
  Serious: No
  Sender: FDA-Public Use
  Company Number: US-PFIZER INC-2012090654

PATIENT
  Sex: Female
  Weight: 52.154 kg

DRUGS (4)
  1. DETROL [Concomitant]
     Dosage: UNK
  2. NEURONTIN [Concomitant]
     Dosage: UNK
  3. IBUPROFEN [Concomitant]
     Dosage: UNK
  4. CELEBREX [Suspect]
     Indication: OSTEOARTHRITIS
     Dosage: 200 MG, 1X/DAY
     Route: 048
     Dates: start: 20120320, end: 20120326

REACTIONS (3)
  - VIRAL INFECTION [None]
  - NAUSEA [None]
  - GASTRIC DISORDER [None]
